FAERS Safety Report 12611619 (Version 3)
Quarter: 2016Q3

REPORT INFORMATION
  Report Type: Other
  Country: US (occurrence: US)
  Receive Date: 20160801
  Receipt Date: 20160830
  Transmission Date: 20161109
  Serious: Yes (Other)
  Sender: FDA-Public Use
  Company Number: US-ACORDA-ACO_126453_2016

PATIENT
  Age: 35 Year
  Sex: Female

DRUGS (2)
  1. AMPYRA [Suspect]
     Active Substance: DALFAMPRIDINE
     Indication: GAIT DISTURBANCE
     Dosage: UNK
     Route: 065
  2. PLEGRIDY [Suspect]
     Active Substance: PEGINTERFERON BETA-1A
     Indication: PRODUCT USED FOR UNKNOWN INDICATION
     Dosage: UNK

REACTIONS (39)
  - Injection site erythema [Unknown]
  - Musculoskeletal pain [Unknown]
  - Fatigue [Unknown]
  - Chills [None]
  - Arthralgia [Unknown]
  - Injection site necrosis [Unknown]
  - Dislocation of vertebra [Unknown]
  - Injection site pain [Unknown]
  - Hypokinesia [Unknown]
  - Weight decreased [Unknown]
  - Stress [Unknown]
  - Hyperhidrosis [Unknown]
  - Fear [Unknown]
  - Nervousness [Unknown]
  - Pruritus [Unknown]
  - Eating disorder [Unknown]
  - Back injury [Unknown]
  - Gait disturbance [Unknown]
  - Headache [Unknown]
  - Pallor [Unknown]
  - Temperature intolerance [Unknown]
  - Irritability [Unknown]
  - Feeling hot [Unknown]
  - Feeling abnormal [Unknown]
  - Sleep terror [Unknown]
  - Vomiting [Unknown]
  - Dysstasia [None]
  - Systemic lupus erythematosus [Unknown]
  - Influenza like illness [Unknown]
  - Pain [Unknown]
  - Musculoskeletal stiffness [Unknown]
  - Syncope [Unknown]
  - Anxiety [Unknown]
  - Dizziness [Unknown]
  - Lethargy [None]
  - Tension [Unknown]
  - Frustration tolerance decreased [Unknown]
  - Migraine [Recovering/Resolving]
  - Abdominal discomfort [Unknown]

NARRATIVE: CASE EVENT DATE: 201606
